FAERS Safety Report 8777721 (Version 1)
Quarter: 2012Q4

REPORT INFORMATION
  Report Type: Report from Study
  Country: DE (occurrence: DE)
  Receive Date: 20120911
  Receipt Date: 20120911
  Transmission Date: 20130627
  Serious: Yes (Hospitalization)
  Sender: FDA-Public Use
  Company Number: DE-ROCHE-701096

PATIENT
  Age: 68 Year
  Sex: Female
  Weight: 77 kg

DRUGS (18)
  1. MABTHERA [Suspect]
     Indication: RHEUMATOID ARTHRITIS
     Dosage: 1ST ADMINISTRATION
     Route: 042
  2. MABTHERA [Suspect]
     Dosage: 2ND ADMINISTRATION
     Route: 042
  3. PREDNISOLON [Concomitant]
     Indication: RHEUMATOID ARTHRITIS
     Route: 048
  4. PREDNISOLON [Concomitant]
     Route: 048
  5. PANTOPRAZOLE [Concomitant]
     Indication: GASTRITIS
     Dosage: DATE OF LAST DOSE PRIOR TO ADVERSE EVENT: 8-MAR-2010.
     Route: 048
  6. DUROGESIC [Concomitant]
     Indication: PAIN
     Dosage: DATE OF LAST DOSE PRIOR TO ADVERSE EVENT: 8-MAR-2010.
     Route: 062
  7. LYRICA [Concomitant]
     Indication: PAIN
     Dosage: DATE OF LAST DOSE PRIOR TO ADVERSE EVENT: 8-MAR-2010.
     Route: 048
  8. DICLOFENAC [Concomitant]
     Indication: PAIN
     Dosage: DATE OF LAST DOSE PRIOR TO ADVERSE EVENT: 8-MAR-2010.
     Route: 048
  9. DICLOFENAC [Concomitant]
     Route: 048
  10. METFORMIN [Concomitant]
     Indication: DIABETES MELLITUS
     Dosage: DATE OF LAST DOSE PRIOR TO ADVERSE EVENT: 8-MAR-2010.
     Route: 048
  11. JANUVIA [Concomitant]
     Indication: DIABETES MELLITUS
     Route: 065
  12. CYMBALTA [Concomitant]
     Indication: URINARY INCONTINENCE
     Route: 065
  13. METOPROLOL [Concomitant]
     Indication: HYPERTENSION
     Dosage: DATE OF LAST DOSE PRIOR TO ADVERSE EVENT: 8-MAR-2010.
     Route: 048
  14. FERROSANOL DUODENAL [Concomitant]
     Indication: ANAEMIA
     Route: 065
  15. ACETYLSALICYLIC ACID [Concomitant]
     Indication: PRODUCT USED FOR UNKNOWN INDICATION
     Route: 065
  16. TORACARD [Concomitant]
     Indication: PRODUCT USED FOR UNKNOWN INDICATION
     Route: 065
  17. CALCIUM NOS [Concomitant]
     Indication: PRODUCT USED FOR UNKNOWN INDICATION
     Route: 065
  18. VITAMIN D [Concomitant]
     Indication: PRODUCT USED FOR UNKNOWN INDICATION
     Route: 065

REACTIONS (4)
  - Encephalitis brain stem [Recovered/Resolved]
  - Viral infection [Recovered/Resolved]
  - Cranial nerve infection [Recovered/Resolved]
  - Cerebrovascular accident [Recovered/Resolved]
